FAERS Safety Report 8760171 (Version 1)
Quarter: 2012Q4

REPORT INFORMATION
  Report Type: 
  Country: US (occurrence: US)
  Receive Date: 20120829
  Receipt Date: 20120829
  Transmission Date: 20130627
  Serious: Yes (Life-Threatening)
  Sender: FDA-Public Use
  Company Number: CHPA2012US018837

PATIENT
  Age: 63 Year
  Sex: Female

DRUGS (5)
  1. IBUPROFEN [Suspect]
     Indication: NECK PAIN
     Dosage: 800 mg, TID
     Route: 048
     Dates: end: 201101
  2. BENEFIBER W/ WHEAT DEXTRIN [Suspect]
     Indication: DYSPEPSIA
     Dosage: 2 TSP, BID
     Route: 048
     Dates: start: 201101, end: 2011
  3. BENEFIBER W/ WHEAT DEXTRIN [Suspect]
     Dosage: 1 TSP, BID
     Route: 048
     Dates: start: 2011, end: 201207
  4. SAM-E [Concomitant]
     Indication: ROUTINE HEALTH MAINTENANCE
     Dosage: UNK, QD
     Route: 048
  5. LAXATIVES [Concomitant]
     Indication: CONSTIPATION
     Dosage: UNK, PRN

REACTIONS (1)
  - Nosocomial infection [Recovered/Resolved]
